FAERS Safety Report 12069328 (Version 1)
Quarter: 2016Q1

REPORT INFORMATION
  Report Type: Spontaneous
  Country: US (occurrence: None)
  Receive Date: 20160211
  Receipt Date: 20160211
  Transmission Date: 20160526
  Serious: Yes (Hospitalization, Disabling, Other)
  Sender: FDA-Public Use
  Company Number: None

PATIENT
  Age: 68 Year
  Sex: Female
  Weight: 47.63 kg

DRUGS (8)
  1. MAGNESIUM [Concomitant]
     Active Substance: MAGNESIUM
  2. BIOTIN [Concomitant]
     Active Substance: BIOTIN
  3. MULTIVITAMIN + MINERAL [Concomitant]
  4. OMEGA 3 [Concomitant]
     Active Substance: OMEGA-3 FATTY ACIDS
  5. CALCIUM [Concomitant]
     Active Substance: CALCIUM
  6. FLORADIX (IRON + HERBS) [Concomitant]
  7. PROLIA [Suspect]
     Active Substance: DENOSUMAB
     Indication: OSTEOPOROSIS
     Dosage: 2X/YEAR INJECTION
     Dates: start: 20110421, end: 20150518
  8. LAXATIVE FORMULA [Concomitant]

REACTIONS (4)
  - Fall [None]
  - Joint injury [None]
  - Pain in extremity [None]
  - Femur fracture [None]

NARRATIVE: CASE EVENT DATE: 20151010
